FAERS Safety Report 15134800 (Version 1)
Quarter: 2018Q3

REPORT INFORMATION
  Report Type: Spontaneous
  Country: US (occurrence: US)
  Receive Date: 20180712
  Receipt Date: 20180712
  Transmission Date: 20181010
  Serious: Yes (Other)
  Sender: FDA-Public Use
  Company Number: US-PFIZER INC-2018276418

PATIENT

DRUGS (1)
  1. CLINDAMYCIN HCL [Suspect]
     Active Substance: CLINDAMYCIN HYDROCHLORIDE
     Dosage: 150 MG, ONE CAPSULE, THREE TIMES A DAY

REACTIONS (3)
  - Cellulitis [Recovering/Resolving]
  - Skin exfoliation [Unknown]
  - Squamous cell carcinoma [Unknown]
